FAERS Safety Report 5685055-9 (Version None)
Quarter: 2008Q1

REPORT INFORMATION
  Report Type: 
  Country: None (occurrence: None)
  Receive Date: 20080328
  Receipt Date: 19991027
  Transmission Date: 20080703
  Serious: Yes (Death)
  Sender: FDA-Public Use
  Company Number: FR-ROCHE-219195

PATIENT
  Sex: Male

DRUGS (1)
  1. TICLID [Suspect]
     Indication: ANGIOPLASTY
     Route: 048

REACTIONS (1)
  - DEATH [None]
